FAERS Safety Report 10245142 (Version 1)
Quarter: 2014Q2

REPORT INFORMATION
  Report Type: Spontaneous
  Country: FR (occurrence: FR)
  Receive Date: 20140618
  Receipt Date: 20140618
  Transmission Date: 20141212
  Serious: Yes (Hospitalization)
  Sender: FDA-Public Use
  Company Number: FR-009507513-1406FRA007959

PATIENT
  Age: 80 Year
  Sex: Female

DRUGS (2)
  1. FOSAVANCE [Suspect]
     Dosage: UNK
     Route: 048
     Dates: end: 20111201
  2. FOSAMAX [Suspect]
     Route: 048

REACTIONS (1)
  - Osteonecrosis [Recovered/Resolved with Sequelae]
